FAERS Safety Report 8417310-3 (Version None)
Quarter: 2012Q2

REPORT INFORMATION
  Report Type: 
  Country: None (occurrence: None)
  Receive Date: 20120606
  Receipt Date: 20120601
  Transmission Date: 20120825
  Serious: Yes (Hospitalization)
  Sender: FDA-Public Use
  Company Number: NL-ELI_LILLY_AND_COMPANY-NL201206000287

PATIENT
  Sex: Male

DRUGS (1)
  1. EFFIENT [Suspect]

REACTIONS (5)
  - DIARRHOEA [None]
  - GASTROENTERITIS [None]
  - MALAISE [None]
  - DIZZINESS [None]
  - GAIT DISTURBANCE [None]
